FAERS Safety Report 10040923 (Version 1)
Quarter: 2014Q1

REPORT INFORMATION
  Report Type: Spontaneous
  Country: US (occurrence: AE)
  Receive Date: 20140327
  Receipt Date: 20140327
  Transmission Date: 20141002
  Serious: Yes (Other)
  Sender: FDA-Public Use
  Company Number: US-JNJCP-30000208394

PATIENT
  Sex: Female

DRUGS (2)
  1. NEUTROGENA OIL FREE ACNE WASH PINK GRAPEFRUIT FACIAL CLEANSER [Suspect]
     Indication: ACNE
     Dosage: ONCE A WEEK, SINCE ONE TO TWO WEEKS
     Route: 061
  2. UNSPECIFIED MAKEUP [Suspect]
     Indication: PRODUCT USED FOR UNKNOWN INDICATION
     Route: 061

REACTIONS (6)
  - Application site pain [Unknown]
  - Application site inflammation [Unknown]
  - Application site pain [Unknown]
  - Application site swelling [Unknown]
  - Hypersensitivity [Unknown]
  - Application site burn [Unknown]
